FAERS Safety Report 6968932-8 (Version None)
Quarter: 2010Q3

REPORT INFORMATION
  Report Type: 
  Country: None (occurrence: None)
  Receive Date: 20100907
  Receipt Date: 20090903
  Transmission Date: 20110219
  Serious: Yes (Other)
  Sender: FDA-Public Use
  Company Number: BR-SANOFI-AVENTIS-200920454GDDC

PATIENT
  Age: 69 Year
  Sex: Female
  Weight: 72 kg

DRUGS (15)
  1. LANTUS [Suspect]
     Dosage: 30IU AT 8:00 AM AND 8 IU AT 6PM
     Route: 058
     Dates: end: 20100831
  2. LANTUS [Suspect]
     Dosage: 36 IU AT 7:00 AM AND 16 IU AT 5:00 PM
     Route: 058
     Dates: start: 20100831
  3. SOLOSTAR [Suspect]
     Dosage: DOSE AS USED: 30 IU AT 8AM AND 8 IU AT 6PM
     Route: 058
     Dates: end: 20090831
  4. SOLOSTAR [Suspect]
     Dosage: DOSE AS USED: 52 IU AT 7AM AND 16 IU AT 5PM
     Route: 058
     Dates: start: 20090831
  5. LANTUS [Suspect]
     Route: 058
  6. APIDRA [Suspect]
     Dosage: MORNING, AFTERNOON AND NIGHT
     Route: 058
  7. AUTOPEN 24 [Suspect]
     Route: 058
  8. NOVORAPID [Concomitant]
     Dosage: DOSE AS USED: 6 IU BEFORE MEALS
     Route: 058
  9. JANUMET [Concomitant]
     Dosage: 50/500 TABS: 2 TABS PER DAY
     Route: 048
  10. OSCAL D [Concomitant]
     Route: 048
  11. SOMALGIN [Concomitant]
     Dosage: DOSE UNIT: 100 MG
     Route: 048
  12. CRESTOR [Concomitant]
     Route: 048
  13. DIOVANE [Concomitant]
     Dosage: DOSE UNIT: 320 MG
     Route: 048
     Dates: start: 20050101
  14. ALDACTONE [Concomitant]
     Dosage: DOSE UNIT: 25 MG
     Route: 048
     Dates: start: 20090101
  15. HYPERIUM [Concomitant]
     Dosage: DOSE UNIT: 1 MG
     Route: 048

REACTIONS (8)
  - ANXIETY [None]
  - GINGIVAL BLEEDING [None]
  - HYPERGLYCAEMIA [None]
  - ORAL INFECTION [None]
  - PAIN IN EXTREMITY [None]
  - TOOTHACHE [None]
  - VISUAL IMPAIRMENT [None]
  - WEIGHT INCREASED [None]
